FAERS Safety Report 7516564-5 (Version None)
Quarter: 2011Q2

REPORT INFORMATION
  Report Type: 
  Country: None (occurrence: None)
  Receive Date: 20110601
  Receipt Date: 20110524
  Transmission Date: 20111010
  Serious: Yes (Hospitalization)
  Sender: FDA-Public Use
  Company Number: B0723323A

PATIENT
  Sex: Female

DRUGS (11)
  1. LANOXIN [Suspect]
     Indication: CARDIAC FAILURE
     Dosage: 1TAB PER DAY
     Route: 048
     Dates: start: 20050411, end: 20110420
  2. ZAROXOLYN [Concomitant]
  3. LORAZEPAM [Concomitant]
  4. ALLOPURINOL [Concomitant]
  5. LASIX [Concomitant]
  6. CITALOPRAM HYDROBROMIDE [Concomitant]
  7. SINTROM [Concomitant]
  8. POTASSIUM CHLORIDE [Concomitant]
  9. MINITRAN [Concomitant]
  10. EUTIROX [Concomitant]
  11. CRESTOR [Concomitant]

REACTIONS (3)
  - TOXICITY TO VARIOUS AGENTS [None]
  - RENAL FAILURE CHRONIC [None]
  - TORSADE DE POINTES [None]
